FAERS Safety Report 15903309 (Version 1)
Quarter: 2019Q1

REPORT INFORMATION
  Report Type: Spontaneous
  Country: FR (occurrence: FR)
  Receive Date: 20190202
  Receipt Date: 20190202
  Transmission Date: 20190417
  Serious: Yes (Other)
  Sender: FDA-Public Use
  Company Number: FR-ACCORD-105029

PATIENT
  Age: 37 Year
  Sex: Male
  Weight: 81 kg

DRUGS (2)
  1. CARBOPLATINE ACCORD [Suspect]
     Active Substance: CARBOPLATIN
     Indication: GASTRIC CANCER
     Route: 041
     Dates: start: 20180425, end: 20180425
  2. HERCEPTIN [Suspect]
     Active Substance: TRASTUZUMAB
     Indication: GASTRIC CANCER
     Route: 041
     Dates: start: 20180425, end: 20180425

REACTIONS (6)
  - Rhinalgia [Recovered/Resolved]
  - Ocular hyperaemia [Recovered/Resolved]
  - Pharyngeal paraesthesia [Recovered/Resolved]
  - Vomiting [Recovered/Resolved]
  - Erythema [Recovered/Resolved]
  - Cough [Recovered/Resolved]

NARRATIVE: CASE EVENT DATE: 20180425
